FAERS Safety Report 4948930-6 (Version None)
Quarter: 2006Q1

REPORT INFORMATION
  Report Type: 
  Country: None (occurrence: None)
  Receive Date: 20060316
  Receipt Date: 20060307
  Transmission Date: 20060701
  Serious: Yes (Other)
  Sender: FDA-Public Use
  Company Number: 163-20785-05120323

PATIENT
  Age: 85 Year
  Sex: Female

DRUGS (4)
  1. THALOMID [Suspect]
     Indication: MULTIPLE MYELOMA
     Dosage: 200 MG, QD, ORAL
     Route: 048
     Dates: start: 20050621, end: 20050804
  2. THALOMID [Suspect]
     Indication: MULTIPLE MYELOMA
     Dosage: 200 MG, QD, ORAL
     Route: 048
     Dates: start: 20050801, end: 20051017
  3. ZOMETA [Concomitant]
  4. PAXIL [Concomitant]

REACTIONS (10)
  - ANAEMIA OF MALIGNANT DISEASE [None]
  - ANOREXIA [None]
  - BACK PAIN [None]
  - CHRONIC OBSTRUCTIVE PULMONARY DISEASE [None]
  - CONDITION AGGRAVATED [None]
  - DELIRIUM [None]
  - HALLUCINATION, VISUAL [None]
  - NEUROTOXICITY [None]
  - PLATELET COUNT DECREASED [None]
  - TREMOR [None]
